FAERS Safety Report 23551884 (Version 2)
Quarter: 2024Q2

REPORT INFORMATION
  Report Type: Report from Study
  Country: US (occurrence: US)
  Receive Date: 20240222
  Receipt Date: 20240517
  Transmission Date: 20240716
  Serious: Yes (Other)
  Sender: FDA-Public Use
  Company Number: US-ABBVIE-5646871

PATIENT
  Age: 65 Year
  Sex: Female

DRUGS (1)
  1. RINVOQ [Suspect]
     Active Substance: UPADACITINIB
     Indication: Rheumatoid arthritis
     Route: 048

REACTIONS (5)
  - Vertebral body replacement [Unknown]
  - Gait disturbance [Unknown]
  - Muscle discomfort [Unknown]
  - Myalgia [Unknown]
  - Sciatica [Unknown]

NARRATIVE: CASE EVENT DATE: 20240201
